FAERS Safety Report 5281738-3 (Version None)
Quarter: 2007Q1

REPORT INFORMATION
  Report Type: 
  Country: None (occurrence: None)
  Receive Date: 20070330
  Receipt Date: 20070323
  Transmission Date: 20070707
  Serious: Yes (Hospitalization)
  Sender: FDA-Public Use
  Company Number: GB-GLAXOSMITHKLINE-B0442299A

PATIENT
  Age: 53 Year
  Sex: Male
  Weight: 72 kg

DRUGS (15)
  1. REQUIP [Suspect]
     Indication: PARKINSON'S DISEASE
     Route: 048
     Dates: start: 19990101
  2. ENTACAPONE [Concomitant]
  3. SINEMET [Concomitant]
     Route: 065
     Dates: start: 20010401
  4. PERGOLIDE MESYLATE [Concomitant]
     Route: 065
     Dates: start: 20000101
  5. CLONAZEPAM [Concomitant]
     Dosage: 500MG PER DAY
     Route: 065
     Dates: start: 20030901
  6. ENTACAPONE [Concomitant]
     Route: 065
     Dates: start: 20040301
  7. CABERGOLINE [Concomitant]
     Route: 065
     Dates: start: 20040601
  8. ATENOLOL [Concomitant]
     Dosage: 500MG PER DAY
     Route: 065
  9. RAMIPRIL [Concomitant]
     Dosage: 10MG PER DAY
     Route: 065
  10. SIMVASTATIN [Concomitant]
     Dosage: 40MG PER DAY
     Route: 065
  11. ASPIRIN [Concomitant]
     Dosage: 75MG PER DAY
     Route: 065
  12. OMEPRAZOLE [Concomitant]
     Dosage: 25MG PER DAY
     Route: 065
  13. CIALIS [Concomitant]
     Indication: ERECTILE DYSFUNCTION
     Dosage: 20MG PER DAY
     Route: 065
  14. CLOPIDOGREL [Concomitant]
     Route: 065
  15. LEVODOPA [Concomitant]

REACTIONS (5)
  - ARTERIAL OCCLUSIVE DISEASE [None]
  - DYSTONIA [None]
  - MUSCULOSKELETAL PAIN [None]
  - OEDEMA [None]
  - SENSORY DISTURBANCE [None]
